FAERS Safety Report 9403188 (Version 1)
Quarter: 2013Q3

REPORT INFORMATION
  Report Type: Spontaneous
  Country: US (occurrence: None)
  Receive Date: 20130712
  Receipt Date: 20130712
  Transmission Date: 20140515
  Serious: Yes (Other)
  Sender: FDA-Public Use
  Company Number: 303500130 AKO-5218

PATIENT
  Age: 73 Year
  Sex: Female

DRUGS (1)
  1. THERATEARS [Suspect]
     Indication: DRY EYE
     Dosage: 2+ DROPS/2 DAYS/ TOPCIAL
     Dates: start: 20130626, end: 20130628

REACTIONS (3)
  - Eye pain [None]
  - Chemical burns of eye [None]
  - Eye burns [None]
